FAERS Safety Report 13128313 (Version 1)
Quarter: 2017Q1

REPORT INFORMATION
  Report Type: Spontaneous
  Country: US (occurrence: US)
  Receive Date: 20170118
  Receipt Date: 20170118
  Transmission Date: 20170428
  Serious: Yes (Hospitalization, Other)
  Sender: FDA-Public Use
  Company Number: US-ELI_LILLY_AND_COMPANY-US201701003764

PATIENT
  Sex: Female

DRUGS (12)
  1. HUMULIN R [Suspect]
     Active Substance: INSULIN HUMAN
     Dosage: 150 U, TID
     Route: 065
  2. HUMALOG [Suspect]
     Active Substance: INSULIN LISPRO
     Indication: TYPE 2 DIABETES MELLITUS
     Dosage: UNK, UNKNOWN
     Route: 065
     Dates: start: 201604, end: 201604
  3. FLUOXETINE [Concomitant]
     Active Substance: FLUOXETINE HYDROCHLORIDE
  4. CANDESARTAN [Concomitant]
     Active Substance: CANDESARTAN
  5. HYDROCODONE [Concomitant]
     Active Substance: HYDROCODONE
  6. HUMULIN R [Suspect]
     Active Substance: INSULIN HUMAN
     Dosage: 150 U, TID
     Route: 065
  7. ISOSORBIDE. [Concomitant]
     Active Substance: ISOSORBIDE
  8. ZANTAC [Concomitant]
     Active Substance: RANITIDINE HYDROCHLORIDE
  9. INSULIN [Concomitant]
     Active Substance: INSULIN NOS
     Dosage: UNK, UNKNOWN
     Route: 065
     Dates: start: 201604, end: 201604
  10. HUMULIN R [Suspect]
     Active Substance: INSULIN HUMAN
     Indication: TYPE 2 DIABETES MELLITUS
     Dosage: 150 U, TID
     Route: 065
     Dates: start: 2013
  11. CLOPIDOGREL [Concomitant]
     Active Substance: CLOPIDOGREL BISULFATE
  12. ATENOLOL. [Concomitant]
     Active Substance: ATENOLOL

REACTIONS (9)
  - Oedema [Unknown]
  - Peripheral swelling [Unknown]
  - Cataract [Unknown]
  - Drug ineffective [Unknown]
  - Oxygen saturation decreased [Unknown]
  - Blood glucose increased [Unknown]
  - Blood glucose decreased [Unknown]
  - Visual acuity reduced [Unknown]
  - Blood glucose increased [Unknown]

NARRATIVE: CASE EVENT DATE: 201604
